FAERS Safety Report 7508539-7 (Version None)
Quarter: 2011Q2

REPORT INFORMATION
  Report Type: 
  Country: None (occurrence: None)
  Receive Date: 20110527
  Receipt Date: 20110513
  Transmission Date: 20111010
  Serious: Yes (Death)
  Sender: FDA-Public Use
  Company Number: US-MYLANLABS-2011S1010170

PATIENT
  Age: 19 Year
  Sex: Male

DRUGS (4)
  1. LISINOPRIL [Suspect]
     Indication: INTENTIONAL OVERDOSE
     Dosage: INGESTED 30 X TABLETS OF AN UNKNOWN DOSE
     Route: 048
  2. AMLODIPINE [Suspect]
     Indication: INTENTIONAL OVERDOSE
     Dosage: INGESTED 70 X AMLODIPINE 10MG TABLETS
     Route: 048
  3. AMLODIPINE [Suspect]
     Indication: SUICIDE ATTEMPT
     Dosage: INGESTED 70 X AMLODIPINE 10MG TABLETS
     Route: 048
  4. LISINOPRIL [Suspect]
     Indication: SUICIDE ATTEMPT
     Dosage: INGESTED 30 X TABLETS OF AN UNKNOWN DOSE
     Route: 048

REACTIONS (4)
  - INTENTIONAL OVERDOSE [None]
  - SUICIDE ATTEMPT [None]
  - HYPOTENSION [None]
  - PULSE ABSENT [None]
